FAERS Safety Report 11051651 (Version 1)
Quarter: 2015Q2

REPORT INFORMATION
  Report Type: Spontaneous
  Country: US (occurrence: None)
  Receive Date: 20150420
  Receipt Date: 20150420
  Transmission Date: 20150821
  Serious: No
  Sender: FDA-Public Use
  Company Number: None

PATIENT

DRUGS (1)
  1. ENOXAPARIN SODIUM (INJECTION) [Suspect]
     Active Substance: ENOXAPARIN SODIUM

REACTIONS (7)
  - Needle issue [None]
  - Product substitution issue [None]
  - Injection site discomfort [None]
  - Product quality issue [None]
  - Injection site pain [None]
  - Product packaging issue [None]
  - Syringe issue [None]
